FAERS Safety Report 9133657 (Version 1)
Quarter: 2013Q1

REPORT INFORMATION
  Report Type: Spontaneous
  Country: GB (occurrence: GB)
  Receive Date: 20130301
  Receipt Date: 20130301
  Transmission Date: 20140127
  Serious: Yes (Hospitalization)
  Sender: FDA-Public Use
  Company Number: PHFR2003GB05474

PATIENT
  Sex: Female

DRUGS (1)
  1. CLOZARIL [Suspect]
     Route: 048
     Dates: start: 20010701

REACTIONS (9)
  - Huntington^s disease [Unknown]
  - Speech disorder [Unknown]
  - Dysphagia [Unknown]
  - Weight decreased [Unknown]
  - Dyskinesia [Unknown]
  - Decreased appetite [Unknown]
  - Thrombocytopenia [Unknown]
  - White blood cell count increased [Unknown]
  - Neutrophil count increased [Unknown]
